FAERS Safety Report 19893210 (Version 1)
Quarter: 2021Q3

REPORT INFORMATION
  Report Type: Spontaneous
  Country: AT (occurrence: AT)
  Receive Date: 20210929
  Receipt Date: 20210929
  Transmission Date: 20211014
  Serious: Yes (Other)
  Sender: FDA-Public Use
  Company Number: AT-BRISTOL-MYERS SQUIBB COMPANY-BMS-2021-097627

PATIENT
  Age: 61 Year
  Sex: Male

DRUGS (1)
  1. NIVOLUMAB [Suspect]
     Active Substance: NIVOLUMAB
     Indication: HEPATOCELLULAR CARCINOMA
     Dosage: 240 MILLIGRAM, Q2WK
     Route: 065

REACTIONS (3)
  - Intentional product use issue [Unknown]
  - Immune-mediated hepatitis [Recovered/Resolved]
  - Lichen planus [Unknown]
